FAERS Safety Report 23144487 (Version 7)
Quarter: 2025Q3

REPORT INFORMATION
  Report Type: Spontaneous
  Country: EU (occurrence: EU)
  Receive Date: 20231103
  Receipt Date: 20250714
  Transmission Date: 20251021
  Serious: Yes (Hospitalization, Other)
  Sender: JOHNSON AND JOHNSON
  Company Number: EU-Desitin-2023-02496

PATIENT
  Age: 28 Year
  Sex: Male

DRUGS (34)
  1. INVEGA [Suspect]
     Active Substance: PALIPERIDONE
     Indication: Schizophrenia
     Dosage: 150 MG EVERY FOUR WEEKS
     Route: 048
  2. DIAZEPAM [Suspect]
     Active Substance: DIAZEPAM
     Indication: Restlessness
     Route: 042
  3. DIAZEPAM [Suspect]
     Active Substance: DIAZEPAM
     Route: 042
  4. CLONAZEPAM [Suspect]
     Active Substance: CLONAZEPAM
     Indication: Schizophrenia
  5. CLONAZEPAM [Suspect]
     Active Substance: CLONAZEPAM
     Dosage: THREE TIMES DAILY
  6. CLONAZEPAM [Suspect]
     Active Substance: CLONAZEPAM
     Route: 065
  7. OLANZAPINE [Suspect]
     Active Substance: OLANZAPINE
     Indication: Schizophrenia
  8. OLANZAPINE [Suspect]
     Active Substance: OLANZAPINE
     Dosage: 10 MG, TWICE A DAY
     Route: 030
  9. OLANZAPINE [Suspect]
     Active Substance: OLANZAPINE
     Route: 030
  10. HALOPERIDOL [Suspect]
     Active Substance: HALOPERIDOL
     Indication: Schizophrenia
     Route: 030
  11. HALOPERIDOL [Suspect]
     Active Substance: HALOPERIDOL
     Route: 030
  12. HALOPERIDOL [Suspect]
     Active Substance: HALOPERIDOL
     Route: 030
  13. CLOZAPINE [Suspect]
     Active Substance: CLOZAPINE
     Indication: Schizophrenia
  14. CLOZAPINE [Suspect]
     Active Substance: CLOZAPINE
  15. CLOZAPINE [Suspect]
     Active Substance: CLOZAPINE
     Route: 065
  16. FLUCONAZOLE [Concomitant]
     Active Substance: FLUCONAZOLE
     Indication: Pneumonia
  17. FLUCONAZOLE [Concomitant]
     Active Substance: FLUCONAZOLE
     Dosage: 4 G, DAILY
     Route: 042
  18. FLUCONAZOLE [Concomitant]
     Active Substance: FLUCONAZOLE
     Route: 042
  19. CIPROFLOXACIN [Concomitant]
     Active Substance: CIPROFLOXACIN
     Indication: COVID-19
  20. CIPROFLOXACIN [Concomitant]
     Active Substance: CIPROFLOXACIN
     Route: 042
  21. MEROPENEM [Concomitant]
     Active Substance: MEROPENEM
     Indication: Pneumonia
  22. MEROPENEM [Concomitant]
     Active Substance: MEROPENEM
     Dosage: 4 G, DAILY
     Route: 065
  23. MEROPENEM [Concomitant]
     Active Substance: MEROPENEM
     Route: 042
  24. REMDESIVIR [Concomitant]
     Active Substance: REMDESIVIR
     Indication: Pneumonia
  25. REMDESIVIR [Concomitant]
     Active Substance: REMDESIVIR
     Route: 065
  26. METAMIZOL [Concomitant]
     Active Substance: METAMIZOLE SODIUM
     Indication: Product used for unknown indication
  27. METAMIZOL [Concomitant]
     Active Substance: METAMIZOLE SODIUM
     Indication: Product used for unknown indication
  28. ACETAMINOPHEN [Concomitant]
     Active Substance: ACETAMINOPHEN
     Indication: Product used for unknown indication
  29. ACETAMINOPHEN [Concomitant]
     Active Substance: ACETAMINOPHEN
     Indication: Product used for unknown indication
  30. BROMOCRIPTINE [Concomitant]
     Active Substance: BROMOCRIPTINE
     Indication: Product used for unknown indication
  31. BROMOCRIPTINE [Concomitant]
     Active Substance: BROMOCRIPTINE
     Indication: Product used for unknown indication
  32. CARIPRAZINE [Concomitant]
     Active Substance: CARIPRAZINE
     Indication: Product used for unknown indication
  33. CLONAZEPAM [Concomitant]
     Active Substance: CLONAZEPAM
     Indication: Product used for unknown indication
     Route: 065
  34. CIPROFLOXACIN [Concomitant]
     Active Substance: CIPROFLOXACIN
     Indication: Product used for unknown indication
     Route: 065

REACTIONS (4)
  - Neuroleptic malignant syndrome [Recovered/Resolved]
  - Off label use [Unknown]
  - Ventricular hypokinesia [Unknown]
  - Sinus tachycardia [Unknown]
